FAERS Safety Report 6438663-1 (Version None)
Quarter: 2009Q4

REPORT INFORMATION
  Report Type: 
  Country: None (occurrence: None)
  Receive Date: 20091110
  Receipt Date: 20091026
  Transmission Date: 20100525
  Serious: Yes (Hospitalization, Other)
  Sender: FDA-Public Use
  Company Number: 2009002776

PATIENT
  Age: 55 Year
  Sex: Male

DRUGS (12)
  1. ERLOTINIB HYDROCHLORIDE [Suspect]
     Indication: HEPATIC NEOPLASM MALIGNANT
     Dosage: ORAL
     Route: 048
     Dates: start: 20090820, end: 20090830
  2. ERLOTINIB HYDROCHLORIDE [Suspect]
     Indication: HEPATIC NEOPLASM MALIGNANT
     Dosage: ORAL
     Route: 048
     Dates: start: 20090903
  3. SORAFENIB [Suspect]
     Indication: HEPATIC NEOPLASM MALIGNANT
     Dosage: 400 MG, ORAL
     Route: 048
     Dates: start: 20090820, end: 20090830
  4. SORAFENIB [Suspect]
     Indication: HEPATIC NEOPLASM MALIGNANT
     Dosage: 400 MG, ORAL
     Route: 048
     Dates: start: 20090903
  5. ENTACAVIR [Concomitant]
  6. NEXIUM [Concomitant]
  7. COLACE (DOCUSATE SODIUM) [Concomitant]
  8. PEA AND RICE PROTEIN (PROTEIN SUPPLEMENTS) [Concomitant]
  9. COD LIVER OIL FORTIFIED TAB [Concomitant]
  10. CALCIUM MAGNESIUM ZINC WITH VITAMIN D [Concomitant]
  11. MAXI-B (MAXI-B) [Concomitant]
  12. PSYLLIUM (PSYLLIUM) [Concomitant]

REACTIONS (9)
  - ABDOMINAL PAIN [None]
  - COLITIS ISCHAEMIC [None]
  - DIZZINESS [None]
  - GASTROINTESTINAL HAEMORRHAGE [None]
  - INTESTINAL ISCHAEMIA [None]
  - METASTATIC NEOPLASM [None]
  - PORTAL VEIN THROMBOSIS [None]
  - SMALL INTESTINAL OBSTRUCTION [None]
  - VARICES OESOPHAGEAL [None]
